FAERS Safety Report 6257160-X (Version None)
Quarter: 2009Q3

REPORT INFORMATION
  Report Type: 
  Country: None (occurrence: None)
  Receive Date: 20090706
  Receipt Date: 20090623
  Transmission Date: 20100115
  Serious: No
  Sender: FDA-Public Use
  Company Number: US-BAYER-200924822NA

PATIENT
  Age: 33 Year
  Sex: Female
  Weight: 82 kg

DRUGS (2)
  1. ULTRAVIST 300 [Suspect]
     Indication: COMPUTERISED TOMOGRAM ABDOMEN
     Dosage: TOTAL DAILY DOSE: 117 ML  UNIT DOSE: 200 ML
     Route: 042
     Dates: start: 20090623, end: 20090623
  2. CYMBALTA [Concomitant]

REACTIONS (3)
  - COUGH [None]
  - NASAL CONGESTION [None]
  - VOMITING [None]
